FAERS Safety Report 5555905-5 (Version None)
Quarter: 2007Q4

REPORT INFORMATION
  Report Type: 
  Country: None (occurrence: None)
  Receive Date: 20071213
  Receipt Date: 20071213
  Transmission Date: 20080405
  Serious: No
  Sender: FDA-Public Use
  Company Number: US-BOEHRINGER INGELHEIM PHARMACEUTICALS, INC.-2005-BP-16220BP

PATIENT
  Sex: Female
  Weight: 45.4 kg

DRUGS (1)
  1. PERSANTINE [Suspect]
     Indication: CARDIAC STRESS TEST
     Route: 042
     Dates: start: 20050802, end: 20050802

REACTIONS (3)
  - BACK PAIN [None]
  - INFLAMMATION [None]
  - PAIN IN EXTREMITY [None]
